FAERS Safety Report 10672261 (Version 1)
Quarter: 2014Q4

REPORT INFORMATION
  Report Type: Spontaneous
  Country: None (occurrence: None)
  Receive Date: 20141222
  Receipt Date: 20141222
  Transmission Date: 20150529
  Serious: Yes (Other)
  Sender: FDA-Public Use
  Company Number: None

PATIENT
  Age: 26 Year
  Sex: Female

DRUGS (1)
  1. NORTRIPTYLINE [Suspect]
     Active Substance: NORTRIPTYLINE
     Indication: MIGRAINE PROPHYLAXIS
     Route: 048
     Dates: start: 20141212, end: 20141219

REACTIONS (4)
  - Eye irritation [None]
  - Dry eye [None]
  - Pain [None]
  - Eye pain [None]

NARRATIVE: CASE EVENT DATE: 20141219
